FAERS Safety Report 23150552 (Version 1)
Quarter: 2023Q4

REPORT INFORMATION
  Report Type: Spontaneous
  Country: US (occurrence: None)
  Receive Date: 20231105
  Receipt Date: 20231105
  Transmission Date: 20240109
  Serious: Yes (unspecified)
  Sender: FDA-Public Use
  Company Number: None

PATIENT
  Age: 48 Year
  Sex: Female
  Weight: 81 kg

DRUGS (7)
  1. PIROXICAM [Suspect]
     Active Substance: PIROXICAM
     Indication: Peripheral swelling
     Dosage: OTHER QUANTITY : 1 CAPSULE(S);?FREQUENCY : DAILY;?
     Route: 048
     Dates: start: 20231025, end: 20231027
  2. CPAP [Concomitant]
  3. METFORMIN [Concomitant]
  4. LISINOPRIL [Concomitant]
     Active Substance: LISINOPRIL
  5. Resveratrol Zyzal [Concomitant]
  6. OMEPRAZOLE [Concomitant]
  7. PROBIOTICS NOS [Concomitant]
     Active Substance: PROBIOTICS NOS

REACTIONS (7)
  - Peripheral swelling [None]
  - Peripheral swelling [None]
  - Peripheral swelling [None]
  - Skin tightness [None]
  - Asthma [None]
  - Blood pressure increased [None]
  - Cardiac failure congestive [None]

NARRATIVE: CASE EVENT DATE: 20231027
